FAERS Safety Report 8507440-X (Version None)
Quarter: 2012Q3

REPORT INFORMATION
  Report Type: 
  Country: None (occurrence: None)
  Receive Date: 20120712
  Receipt Date: 20120614
  Transmission Date: 20120928
  Serious: Yes (Other)
  Sender: FDA-Public Use
  Company Number: PHEH2012US013642

PATIENT

DRUGS (1)
  1. GILENYA [Suspect]

REACTIONS (1)
  - MYOCARDIAL INFARCTION [None]
